FAERS Safety Report 7875381-7 (Version None)
Quarter: 2011Q4

REPORT INFORMATION
  Report Type: 
  Country: None (occurrence: None)
  Receive Date: 20111031
  Receipt Date: 20111020
  Transmission Date: 20120403
  Serious: Yes (Hospitalization)
  Sender: FDA-Public Use
  Company Number: JP-GLAXOSMITHKLINE-B0757503A

PATIENT

DRUGS (1)
  1. PAXIL [Suspect]
     Indication: PRODUCT USED FOR UNKNOWN INDICATION
     Dosage: 10MG PER DAY
     Route: 064
     Dates: start: 20070315, end: 20101231

REACTIONS (3)
  - ATRIOVENTRICULAR SEPTAL DEFECT [None]
  - CONGENITAL MEGACOLON [None]
  - MATERNAL EXPOSURE DURING PREGNANCY [None]
